FAERS Safety Report 23425056 (Version 2)
Quarter: 2024Q1

REPORT INFORMATION
  Report Type: Report from Study
  Country: US (occurrence: US)
  Receive Date: 20240121
  Receipt Date: 20240220
  Transmission Date: 20240409
  Serious: Yes (Death)
  Sender: FDA-Public Use
  Company Number: US-ABBVIE-5598888

PATIENT
  Age: 61 Year
  Sex: Female

DRUGS (2)
  1. SKYRIZI [Suspect]
     Active Substance: RISANKIZUMAB-RZAA
     Indication: Psoriasis
     Route: 058
     Dates: start: 20210217
  2. SKYRIZI [Suspect]
     Active Substance: RISANKIZUMAB-RZAA
     Indication: Polymyalgia rheumatica

REACTIONS (1)
  - Death [Fatal]

NARRATIVE: CASE EVENT DATE: 20231125
